FAERS Safety Report 12451339 (Version 1)
Quarter: 2016Q2

REPORT INFORMATION
  Report Type: Spontaneous
  Country: US (occurrence: US)
  Receive Date: 20160609
  Receipt Date: 20160609
  Transmission Date: 20160815
  Serious: Yes (Hospitalization)
  Sender: FDA-Public Use
  Company Number: US-SA-2016SA106549

PATIENT
  Age: 54 Year
  Sex: Male

DRUGS (11)
  1. AUBAGIO [Suspect]
     Active Substance: TERIFLUNOMIDE
     Indication: MULTIPLE SCLEROSIS
     Route: 048
     Dates: start: 20160411
  2. ABILIFY [Concomitant]
     Active Substance: ARIPIPRAZOLE
     Dosage: MG
  3. LEXAPRO [Concomitant]
     Active Substance: ESCITALOPRAM OXALATE
     Dosage: 5 MG
  4. AMANTADINE [Concomitant]
     Active Substance: AMANTADINE
     Dosage: 100 MG
  5. AUBAGIO [Suspect]
     Active Substance: TERIFLUNOMIDE
     Indication: MULTIPLE SCLEROSIS
     Route: 048
     Dates: start: 20160502
  6. BUSPIRONE [Concomitant]
     Active Substance: BUSPIRONE HYDROCHLORIDE
     Dosage: 15 MG
  7. FLOMAX [Concomitant]
     Active Substance: TAMSULOSIN HYDROCHLORIDE
     Dosage: 0.4 MG
  8. WATER PILLS [Concomitant]
     Active Substance: UNSPECIFIED INGREDIENT
  9. LISINOPRIL. [Concomitant]
     Active Substance: LISINOPRIL
  10. CLARITIN [Concomitant]
     Active Substance: LORATADINE
     Dosage: 10 MG
  11. PROVIGIL [Concomitant]
     Active Substance: MODAFINIL

REACTIONS (4)
  - Hospitalisation [Unknown]
  - Neck pain [Unknown]
  - Fatigue [Unknown]
  - Myalgia [Unknown]

NARRATIVE: CASE EVENT DATE: 20160411
